FAERS Safety Report 12661516 (Version 5)
Quarter: 2016Q4

REPORT INFORMATION
  Report Type: Spontaneous
  Country: US (occurrence: US)
  Receive Date: 20160817
  Receipt Date: 20161005
  Transmission Date: 20170207
  Serious: No
  Sender: FDA-Public Use
  Company Number: US-PFIZER INC-2016362562

PATIENT
  Age: 60 Year
  Sex: Male
  Weight: 77 kg

DRUGS (3)
  1. VIAGRA [Suspect]
     Active Substance: SILDENAFIL CITRATE
     Indication: ERECTILE DYSFUNCTION
     Dosage: 100 MG, CUT IN 1/4 OR 1/2
  2. VIAGRA [Suspect]
     Active Substance: SILDENAFIL CITRATE
     Dosage: 100 MG, TOOK A FULL PILL
  3. VIAGRA [Suspect]
     Active Substance: SILDENAFIL CITRATE
     Dosage: 100 MG, UNK
     Dates: start: 20160510, end: 201607

REACTIONS (4)
  - Drug ineffective [Unknown]
  - Ocular hyperaemia [Unknown]
  - Flushing [Unknown]
  - Intentional product use issue [Unknown]
